FAERS Safety Report 6061816-1 (Version None)
Quarter: 2009Q1

REPORT INFORMATION
  Report Type: 
  Country: None (occurrence: None)
  Receive Date: 20090202
  Receipt Date: 20090123
  Transmission Date: 20090719
  Serious: Yes (Hospitalization)
  Sender: FDA-Public Use
  Company Number: US-ELI_LILLY_AND_COMPANY-US200901004697

PATIENT
  Sex: Female

DRUGS (12)
  1. BYETTA [Suspect]
     Indication: DIABETES MELLITUS
     Dosage: 5 UG, 2/D
     Route: 065
     Dates: start: 20071114, end: 20081215
  2. MOTRIN [Concomitant]
     Dosage: 800 MG, AS NEEDED
     Route: 065
  3. CYMBALTA [Concomitant]
     Dosage: 60 MG, DAILY (1/D)
     Route: 065
  4. ACTOS [Concomitant]
     Dosage: 30 MG, DAILY (1/D)
     Route: 065
  5. ATIVAN [Concomitant]
     Indication: ANXIETY
     Dosage: 0.5 MG, 3/D
     Route: 065
  6. TRICOR [Concomitant]
     Dosage: 145 MG, EACH EVENING
     Route: 065
  7. AMBIEN [Concomitant]
     Dosage: 10 MG, EACH EVENING
     Route: 065
  8. ELAVIL [Concomitant]
     Dosage: 25 MG, EACH EVENING
     Route: 065
  9. CLONIDINE [Concomitant]
     Dosage: 0.1 MG, 2/D
     Route: 065
  10. METFORMIN [Concomitant]
     Dosage: 1000 MG, 2/D
     Route: 065
  11. ASPIRIN [Concomitant]
     Dosage: 81 MG, DAILY (1/D)
     Route: 065
  12. LISINOPRIL [Concomitant]
     Dosage: 5 MG, DAILY (1/D)
     Route: 065

REACTIONS (4)
  - BLOOD GLUCOSE DECREASED [None]
  - CHOLELITHIASIS [None]
  - LIVER FUNCTION TEST ABNORMAL [None]
  - PANCREATITIS [None]
